FAERS Safety Report 17526250 (Version 1)
Quarter: 2020Q1

REPORT INFORMATION
  Report Type: Spontaneous
  Country: US (occurrence: US)
  Receive Date: 20200311
  Receipt Date: 20200311
  Transmission Date: 20200409
  Serious: No
  Sender: FDA-Public Use
  Company Number: US-GLAXOSMITHKLINE-US2020042029

PATIENT
  Age: 88 Year
  Sex: Female

DRUGS (1)
  1. DICLOFENAC SODIUM GEL [Suspect]
     Active Substance: DICLOFENAC SODIUM
     Indication: MUSCULOSKELETAL PAIN
     Dosage: UNK (APPLYING IT EVERY 4 HOURS)
     Dates: start: 202002, end: 20200229

REACTIONS (9)
  - Feeling abnormal [Recovering/Resolving]
  - Drug effective for unapproved indication [Unknown]
  - Adverse drug reaction [Recovering/Resolving]
  - Product administered at inappropriate site [Unknown]
  - Abdominal pain upper [Recovering/Resolving]
  - Product use in unapproved indication [Unknown]
  - Inappropriate schedule of product administration [Unknown]
  - Tachycardia [Recovering/Resolving]
  - Dizziness [Recovering/Resolving]
